FAERS Safety Report 5325983-7 (Version None)
Quarter: 2007Q2

REPORT INFORMATION
  Report Type: 
  Country: None (occurrence: None)
  Receive Date: 20070516
  Receipt Date: 20070510
  Transmission Date: 20071010
  Serious: Yes (Hospitalization, Other)
  Sender: FDA-Public Use
  Company Number: US-ASTRAZENECA-2007UW11281

PATIENT
  Age: 60 Year
  Sex: Male

DRUGS (4)
  1. CRESTOR [Suspect]
     Route: 048
     Dates: start: 20050101
  2. CRESTOR [Suspect]
     Route: 048
     Dates: start: 20070101
  3. ZESTORETIC [Concomitant]
     Dosage: 20/12.5 MG
     Route: 048
  4. CIPRO [Concomitant]

REACTIONS (3)
  - NEPHROLITHIASIS [None]
  - RENAL FAILURE [None]
  - SEPSIS [None]
